FAERS Safety Report 7401208-3 (Version None)
Quarter: 2011Q2

REPORT INFORMATION
  Report Type: 
  Country: None (occurrence: None)
  Receive Date: 20110407
  Receipt Date: 20110331
  Transmission Date: 20111010
  Serious: Yes (Other)
  Sender: FDA-Public Use
  Company Number: CHPA2011US04792

PATIENT
  Age: 72 Year
  Sex: Male

DRUGS (2)
  1. TRANSDERM SCOP [Suspect]
     Indication: MOTION SICKNESS
     Dosage: 1 DF, ONCE/SINGLE
     Route: 062
     Dates: start: 20110214, end: 20110216
  2. DELSYM [Suspect]
     Indication: COUGH
     Dosage: 1 TSP, ONCE/SINGLE
     Route: 048
     Dates: start: 20110216, end: 20110216

REACTIONS (6)
  - HALLUCINATION [None]
  - ABNORMAL BEHAVIOUR [None]
  - CONFUSIONAL STATE [None]
  - DISORIENTATION [None]
  - SCREAMING [None]
  - AGGRESSION [None]
